FAERS Safety Report 19238765 (Version 1)
Quarter: 2021Q2

REPORT INFORMATION
  Report Type: Report from Study
  Country: CZ (occurrence: CZ)
  Receive Date: 20210510
  Receipt Date: 20210510
  Transmission Date: 20210717
  Serious: Yes (Hospitalization, Other)
  Sender: FDA-Public Use
  Company Number: CZ-TAKEDA-2016BLT002458

PATIENT
  Age: 1 Month
  Sex: Male
  Weight: 14 kg

DRUGS (19)
  1. CUVITRU [Concomitant]
     Active Substance: HUMAN IMMUNOGLOBULIN G
     Indication: HYPOGAMMAGLOBULINAEMIA
     Dosage: 2 GRAM, Q2WEEKS
     Route: 065
     Dates: start: 20191016
  2. SUMETROLIM SIR [Concomitant]
     Indication: HYPOGAMMAGLOBULINAEMIA
     Dosage: 240 MILLIGRAM, BID
     Route: 065
     Dates: start: 20181217
  3. ADVATE [Suspect]
     Active Substance: ANTIHEMOPHILIC FACTOR, HUMAN RECOMBINANT
     Dosage: 125 UNK
     Route: 042
     Dates: start: 20160903
  4. DICYNONE [Concomitant]
     Active Substance: ETHAMSYLATE
     Indication: HAEMORRHAGE
     Dosage: 75 MILLIGRAM, Q6HR
     Route: 065
     Dates: start: 20160413, end: 20160416
  5. PAMBA [Concomitant]
     Indication: HAEMORRHAGE
     Dosage: 12.5 MILLIGRAM, TID
     Route: 065
     Dates: start: 20160413, end: 20160415
  6. ADVATE [Suspect]
     Active Substance: ANTIHEMOPHILIC FACTOR, HUMAN RECOMBINANT
     Indication: PROPHYLAXIS
     Dosage: 250 IU, UNK
     Route: 042
     Dates: start: 20160411
  7. ADVATE [Suspect]
     Active Substance: ANTIHEMOPHILIC FACTOR, HUMAN RECOMBINANT
     Dosage: 250 UNK, EVERY 2 DY
     Route: 042
     Dates: start: 20160413
  8. ADVATE [Suspect]
     Active Substance: ANTIHEMOPHILIC FACTOR, HUMAN RECOMBINANT
     Dosage: 250 UNK, EVERY 2 DY
     Route: 042
     Dates: start: 20160413
  9. CVL [Concomitant]
     Indication: CENTRAL VENOUS PRESSURE ABNORMAL
     Dosage: UNK UNK, SINGLE
     Route: 065
     Dates: start: 20180710, end: 20180710
  10. ADVATE [Suspect]
     Active Substance: ANTIHEMOPHILIC FACTOR, HUMAN RECOMBINANT
     Indication: PROPHYLAXIS
     Dosage: 250 IU, UNK
     Route: 042
     Dates: start: 20160411
  11. ADVATE [Suspect]
     Active Substance: ANTIHEMOPHILIC FACTOR, HUMAN RECOMBINANT
     Dosage: 250 UNK, EVERY 2 DY
     Route: 042
     Dates: start: 20160413
  12. AKTIFERRIN COMPOS. [Concomitant]
     Indication: IRON DEFICIENCY ANAEMIA
     Dosage: 20 INTERNATIONAL UNIT, BID
     Route: 065
     Dates: start: 20160708
  13. ADVATE [Suspect]
     Active Substance: ANTIHEMOPHILIC FACTOR, HUMAN RECOMBINANT
     Dosage: 125 UNK
     Route: 042
     Dates: start: 20160903
  14. MALTOFER VIT [Concomitant]
     Indication: IRON DEFICIENCY ANAEMIA
     Dosage: 2.5 MILLILITER, QD
     Route: 065
     Dates: start: 20180124
  15. ADVATE [Suspect]
     Active Substance: ANTIHEMOPHILIC FACTOR, HUMAN RECOMBINANT
     Indication: PROPHYLAXIS
     Dosage: 250 IU, UNK
     Route: 042
     Dates: start: 20160411
  16. ADVATE [Suspect]
     Active Substance: ANTIHEMOPHILIC FACTOR, HUMAN RECOMBINANT
     Dosage: 125 UNK
     Route: 042
     Dates: start: 20160903
  17. COLECALCIFEROLUM [Concomitant]
     Indication: RICKETS
     Dosage: 1000 INTERNATIONAL UNIT, QD
     Route: 065
     Dates: start: 20160215
  18. FEIBA NF [Concomitant]
     Active Substance: ANTI-INHIBITOR COAGULANT COMPLEX
     Indication: HAEMORRHAGE
     Dosage: 500 INTERNATIONAL UNIT, BID
     Route: 065
     Dates: start: 20160413, end: 20160421
  19. PYRIDOXINE [Concomitant]
     Active Substance: PYRIDOXINE
     Indication: IRON DEFICIENCY ANAEMIA
     Dosage: 10 MILLIGRAM, QD
     Route: 065
     Dates: start: 20160708

REACTIONS (2)
  - Factor VIII inhibition [Recovered/Resolved]
  - Central venous catheterisation [Not Recovered/Not Resolved]

NARRATIVE: CASE EVENT DATE: 20160412
